FAERS Safety Report 7803167-8 (Version None)
Quarter: 2011Q4

REPORT INFORMATION
  Report Type: 
  Country: None (occurrence: None)
  Receive Date: 20111007
  Receipt Date: 20111003
  Transmission Date: 20120403
  Serious: Yes (Other)
  Sender: FDA-Public Use
  Company Number: BR-ABBOTT-11P-020-0860930-00

PATIENT
  Sex: Male
  Weight: 78 kg

DRUGS (2)
  1. LOSARTAN POTASSIUM [Concomitant]
     Indication: PRODUCT USED FOR UNKNOWN INDICATION
  2. HUMIRA [Suspect]
     Indication: PSORIASIS
     Dates: start: 20101001, end: 20110201

REACTIONS (2)
  - GASTROINTESTINAL NEOPLASM [None]
  - METASTASIS [None]
